FAERS Safety Report 13783129 (Version 2)
Quarter: 2017Q3

REPORT INFORMATION
  Report Type: Spontaneous
  Country: PR (occurrence: US)
  Receive Date: 20170724
  Receipt Date: 20170815
  Transmission Date: 20171127
  Serious: Yes (Death, Other)
  Sender: FDA-Public Use
  Company Number: PR-GLAXOSMITHKLINE-US2017113125

PATIENT
  Sex: Female

DRUGS (1)
  1. NUCALA [Suspect]
     Active Substance: MEPOLIZUMAB
     Indication: ASTHMA
     Dosage: 100 MG, UNK
     Route: 058

REACTIONS (6)
  - Chest discomfort [Unknown]
  - Infection [Unknown]
  - Death [Fatal]
  - Lung infiltration [Unknown]
  - Dyspnoea [Unknown]
  - Cardiac disorder [Unknown]
